FAERS Safety Report 14482805 (Version 1)
Quarter: 2018Q1

REPORT INFORMATION
  Report Type: Other
  Country: ES (occurrence: ES)
  Receive Date: 20180203
  Receipt Date: 20180203
  Transmission Date: 20180509
  Serious: Yes (Hospitalization)
  Sender: FDA-Public Use
  Company Number: ES-MACLEODS PHARMACEUTICALS US LTD-MAC2018009152

PATIENT

DRUGS (2)
  1. LEVOFLOXACIN. [Suspect]
     Active Substance: LEVOFLOXACIN
     Indication: RESPIRATORY TRACT INFECTION
     Dosage: 500MG EVERY 24 HOURS
     Route: 048
     Dates: start: 20170305, end: 20170306
  2. CEFDITOREN [Suspect]
     Active Substance: CEFDITOREN
     Indication: RESPIRATORY TRACT INFECTION
     Dosage: 400 MG EVERY 12 HOURS
     Route: 048
     Dates: start: 20170226, end: 20170304

REACTIONS (1)
  - Acute generalised exanthematous pustulosis [Recovered/Resolved]

NARRATIVE: CASE EVENT DATE: 20170307
